FAERS Safety Report 5394924-9 (Version None)
Quarter: 2007Q3

REPORT INFORMATION
  Report Type: 
  Country: None (occurrence: None)
  Receive Date: 20070720
  Receipt Date: 20070710
  Transmission Date: 20080115
  Serious: Yes (Other)
  Sender: FDA-Public Use
  Company Number: 2007VX001814

PATIENT
  Age: 73 Year
  Sex: Male

DRUGS (2)
  1. PERMAX [Suspect]
     Indication: PARKINSON'S DISEASE
     Dosage: PO
     Route: 048
  2. BROMOCRIPTINE MESYLATE [Concomitant]

REACTIONS (1)
  - ASCITES [None]
